APPROVED DRUG PRODUCT: SEVELAMER CARBONATE
Active Ingredient: SEVELAMER CARBONATE
Strength: 2.4GM/PACKET
Dosage Form/Route: FOR SUSPENSION;ORAL
Application: A215909 | Product #002
Applicant: TORRENT PHARMACEUTICALS LTD
Approved: Feb 27, 2025 | RLD: No | RS: No | Type: DISCN